FAERS Safety Report 23741227 (Version 1)
Quarter: 2024Q2

REPORT INFORMATION
  Report Type: Spontaneous
  Country: US (occurrence: US)
  Receive Date: 20240415
  Receipt Date: 20240415
  Transmission Date: 20240715
  Serious: Yes (Hospitalization, Other)
  Sender: FDA-Public Use
  Company Number: US-CBL-002538

PATIENT
  Sex: Female

DRUGS (1)
  1. MYCOPHENOLATE MOFETIL [Suspect]
     Active Substance: MYCOPHENOLATE MOFETIL
     Indication: Systemic scleroderma
     Route: 065

REACTIONS (4)
  - Epstein-Barr virus associated lymphoproliferative disorder [Not Recovered/Not Resolved]
  - Small intestinal perforation [Not Recovered/Not Resolved]
  - COVID-19 [Unknown]
  - Product use in unapproved indication [Unknown]
